FAERS Safety Report 6642461-3 (Version None)
Quarter: 2010Q1

REPORT INFORMATION
  Report Type: 
  Country: None (occurrence: None)
  Receive Date: 20100319
  Receipt Date: 20100310
  Transmission Date: 20100710
  Serious: Yes (Other)
  Sender: FDA-Public Use
  Company Number: B0641346A

PATIENT
  Sex: Female

DRUGS (2)
  1. NIQUITIN 21MG [Suspect]
     Route: 062
     Dates: start: 20100201
  2. NIQUITIN CQ LOZENGE, MINT [Suspect]
     Route: 002
     Dates: start: 20100201, end: 20100310

REACTIONS (8)
  - APPLICATION SITE BURN [None]
  - APPLICATION SITE PRURITUS [None]
  - APPLICATION SITE REACTION [None]
  - ASPHYXIA [None]
  - DERMATITIS BULLOUS [None]
  - DYSPNOEA [None]
  - THERMAL BURN [None]
  - TREATMENT NONCOMPLIANCE [None]
